FAERS Safety Report 23364786 (Version 5)
Quarter: 2025Q1

REPORT INFORMATION
  Report Type: Report from Study
  Country: JP (occurrence: JP)
  Receive Date: 20240104
  Receipt Date: 20250315
  Transmission Date: 20250409
  Serious: Yes (Hospitalization, Other)
  Sender: ABBVIE
  Company Number: JP-TAKEDA-2023TJP017512

PATIENT
  Age: 56 Year
  Sex: Male

DRUGS (9)
  1. LEUPLIN [Suspect]
     Active Substance: LEUPROLIDE ACETATE
     Indication: Bulbospinal muscular atrophy congenital
     Dosage: 11.25 MILLIGRAM, Q3MONTHS
     Route: 058
     Dates: start: 20180226
  2. AROTINOLOL HYDROCHLORIDE [Concomitant]
     Active Substance: AROTINOLOL HYDROCHLORIDE
     Indication: Bulbospinal muscular atrophy congenital
     Route: 065
     Dates: start: 20140811
  3. ELDECALCITOL [Concomitant]
     Active Substance: ELDECALCITOL
     Indication: Product used for unknown indication
     Route: 065
     Dates: start: 20240930
  4. RIVOTRIL [Concomitant]
     Active Substance: CLONAZEPAM
     Indication: Bulbospinal muscular atrophy congenital
     Route: 065
     Dates: start: 20140811, end: 20240930
  5. REBAMIPIDE [Concomitant]
     Active Substance: REBAMIPIDE
     Indication: Bulbospinal muscular atrophy congenital
     Route: 065
     Dates: start: 20221031
  6. CETIRIZINE HYDROCHLORIDE [Concomitant]
     Active Substance: CETIRIZINE HYDROCHLORIDE
     Indication: Rhinitis allergic
     Route: 065
     Dates: start: 20190204
  7. LOXOPROFEN SODIUM [Concomitant]
     Active Substance: LOXOPROFEN SODIUM
     Indication: Bulbospinal muscular atrophy congenital
     Route: 065
     Dates: start: 20230130, end: 20240708
  8. CELECOXIB [Concomitant]
     Active Substance: CELECOXIB
     Indication: Bulbospinal muscular atrophy congenital
     Route: 065
     Dates: start: 20221031
  9. LOXOPROFEN SODIUM [Concomitant]
     Active Substance: LOXOPROFEN SODIUM
     Indication: Bulbospinal muscular atrophy congenital
     Route: 065
     Dates: start: 20180521

REACTIONS (3)
  - Femoral neck fracture [Recovered/Resolved]
  - Bone density decreased [Recovering/Resolving]
  - Radius fracture [Recovered/Resolved]

NARRATIVE: CASE EVENT DATE: 20220725
